FAERS Safety Report 10534865 (Version 1)
Quarter: 2014Q4

REPORT INFORMATION
  Report Type: Spontaneous
  Country: US (occurrence: US)
  Receive Date: 20141022
  Receipt Date: 20141022
  Transmission Date: 20150529
  Serious: Yes (Hospitalization)
  Sender: FDA-Public Use
  Company Number: US-PFIZER INC-2014288879

PATIENT
  Age: 52 Year
  Sex: Female
  Weight: 113.38 kg

DRUGS (8)
  1. CYMBALTA [Concomitant]
     Active Substance: DULOXETINE HYDROCHLORIDE
     Dosage: 60 MG, UNK
     Route: 048
  2. ELDOQUIN [Concomitant]
     Dosage: 2 %, UNK
  3. XELJANZ [Suspect]
     Active Substance: TOFACITINIB CITRATE
     Dosage: 5 MG, UNK
     Route: 048
  4. LORAZEPAM. [Concomitant]
     Active Substance: LORAZEPAM
     Dosage: 0.5 MG, UNK
     Route: 048
  5. MS CONTIN [Concomitant]
     Active Substance: MORPHINE SULFATE
     Dosage: 30 MG, UNK
     Route: 048
  6. CARDENE [Concomitant]
     Active Substance: NICARDIPINE HYDROCHLORIDE
     Dosage: 30 MG, UNK
     Route: 048
  7. ORENCIA [Concomitant]
     Active Substance: ABATACEPT
     Dosage: 250 MG, UNK
     Route: 058
  8. PERCOCET [Concomitant]
     Active Substance: ACETAMINOPHEN\OXYCODONE HYDROCHLORIDE
     Dosage: OXYCODONE HYDROCHLORIDE 7.5 MG/ PARACETAMOL 325 MG
     Route: 048

REACTIONS (2)
  - Pneumonia [Recovered/Resolved]
  - Atrial fibrillation [Recovered/Resolved]

NARRATIVE: CASE EVENT DATE: 20140826
